FAERS Safety Report 6570939-X (Version None)
Quarter: 2010Q1

REPORT INFORMATION
  Report Type: 
  Country: None (occurrence: None)
  Receive Date: 20100203
  Receipt Date: 20100203
  Transmission Date: 20100710
  Serious: Yes (Hospitalization)
  Sender: FDA-Public Use
  Company Number: None

PATIENT
  Sex: Female
  Weight: 68.0396 kg

DRUGS (1)
  1. LEVAQUIN [Suspect]
     Indication: PNEUMONIA
     Dosage: 1 TABLET DAILY PO
     Route: 048
     Dates: start: 20100102, end: 20100106

REACTIONS (3)
  - DEEP VEIN THROMBOSIS [None]
  - MUSCLE RUPTURE [None]
  - PAIN [None]
